FAERS Safety Report 6940265-5 (Version None)
Quarter: 2010Q3

REPORT INFORMATION
  Report Type: 
  Country: None (occurrence: None)
  Receive Date: 20100825
  Receipt Date: 20100811
  Transmission Date: 20110219
  Serious: Yes (Hospitalization)
  Sender: FDA-Public Use
  Company Number: PHHY2010AT55206

PATIENT
  Age: 89 Year
  Sex: Male

DRUGS (3)
  1. RASILEZ [Suspect]
  2. EXFORGE [Suspect]
  3. ACE INHIBITOR NOS [Concomitant]

REACTIONS (1)
  - RENAL FAILURE ACUTE [None]
